FAERS Safety Report 6538603-0 (Version None)
Quarter: 2010Q1

REPORT INFORMATION
  Report Type: 
  Country: None (occurrence: None)
  Receive Date: 20100113
  Receipt Date: 20100113
  Transmission Date: 20100710
  Serious: No
  Sender: FDA-Public Use
  Company Number: None

PATIENT
  Age: 81 Year
  Sex: Male
  Weight: 85.7 kg

DRUGS (8)
  1. LEVAQUIN [Suspect]
     Indication: DIVERTICULITIS
     Dosage: 500MG QDAY IV 11/12/09 X1 DOSE
     Route: 042
     Dates: start: 20091112
  2. CEFSTAN [Concomitant]
  3. NEXIUM [Concomitant]
  4. VICODIN [Concomitant]
  5. ALBUTEROL [Concomitant]
  6. ASPIRIN [Concomitant]
  7. LEXAPRO [Concomitant]
  8. LIPITOR [Concomitant]

REACTIONS (2)
  - PRURITUS [None]
  - RASH [None]
